FAERS Safety Report 19931599 (Version 3)
Quarter: 2022Q1

REPORT INFORMATION
  Report Type: Spontaneous
  Country: RU (occurrence: RU)
  Receive Date: 20211008
  Receipt Date: 20220113
  Transmission Date: 20220423
  Serious: Yes (Hospitalization, Other)
  Sender: FDA-Public Use
  Company Number: RU-BOEHRINGERINGELHEIM-2021-BI-131304

PATIENT
  Age: 71 Year
  Sex: Male

DRUGS (1)
  1. NINTEDANIB [Suspect]
     Active Substance: NINTEDANIB
     Indication: Idiopathic pulmonary fibrosis
     Route: 048
     Dates: start: 201702

REACTIONS (7)
  - Interstitial lung disease [Unknown]
  - Diarrhoea [Unknown]
  - Intestinal haemorrhage [Unknown]
  - Colitis [Unknown]
  - Intestinal mass [Unknown]
  - Diverticulum intestinal [Unknown]
  - Idiopathic pulmonary fibrosis [Unknown]

NARRATIVE: CASE EVENT DATE: 20170101
